FAERS Safety Report 4574526-4 (Version None)
Quarter: 2005Q1

REPORT INFORMATION
  Report Type: 
  Country: None (occurrence: None)
  Receive Date: 20050208
  Receipt Date: 20030909
  Transmission Date: 20050727
  Serious: No
  Sender: FDA-Public Use
  Company Number: US-GLAXOSMITHKLINE-A0425832A

PATIENT
  Age: 38 Year
  Sex: Female

DRUGS (4)
  1. PAXIL [Suspect]
     Indication: DEPRESSION
     Dosage: 20MG PER DAY
     Route: 048
     Dates: start: 19990111, end: 20010101
  2. ALBUTEROL [Concomitant]
  3. VANCERIL [Concomitant]
  4. TRIPHASIL-21 [Concomitant]
     Indication: DRUG USE FOR UNKNOWN INDICATION
     Route: 048

REACTIONS (2)
  - ANXIETY [None]
  - DRUG WITHDRAWAL SYNDROME [None]
